FAERS Safety Report 10067234 (Version 2)
Quarter: 2015Q3

REPORT INFORMATION
  Report Type: Spontaneous
  Country: US (occurrence: None)
  Receive Date: 20140407
  Receipt Date: 20150921
  Transmission Date: 20151125
  Serious: Yes (Hospitalization)
  Sender: FDA-Public Use
  Company Number: 1713747-2014-99941

PATIENT
  Age: 51 Year
  Sex: Male
  Weight: 98 kg

DRUGS (5)
  1. LIBERTY CYCLER CASSETTE [Concomitant]
     Active Substance: DEVICE
  2. LANTUS [Concomitant]
     Active Substance: INSULIN GLARGINE
  3. LIBERTY CYCLER [Concomitant]
     Active Substance: DEVICE
  4. EPOGEN [Concomitant]
     Active Substance: ERYTHROPOIETIN
  5. DELFLEX [Suspect]
     Active Substance: CALCIUM CHLORIDE\DEXTROSE MONOHYDRATE\MAGNESIUM CHLORIDE\SODIUM CHLORIDE\SODIUM LACTATE
     Indication: CHRONIC KIDNEY DISEASE
     Dosage: DAILY, PERITONEAL
     Route: 033
     Dates: start: 20130825

REACTIONS (1)
  - Peritonitis [None]

NARRATIVE: CASE EVENT DATE: 20130825
